FAERS Safety Report 21260855 (Version 1)
Quarter: 2022Q3

REPORT INFORMATION
  Report Type: Report from Study
  Country: CA (occurrence: CA)
  Receive Date: 20220826
  Receipt Date: 20220826
  Transmission Date: 20221026
  Serious: Yes (Other)
  Sender: FDA-Public Use
  Company Number: CA-AstraZeneca-2022A259076

PATIENT
  Sex: Female

DRUGS (1)
  1. ENHERTU [Suspect]
     Active Substance: FAM-TRASTUZUMAB DERUXTECAN-NXKI
     Indication: Breast cancer metastatic
     Dosage: 340 MG, ONCE EVERY 3 WK
     Route: 042
     Dates: start: 20220502

REACTIONS (2)
  - Liver disorder [Recovering/Resolving]
  - Off label use [Recovering/Resolving]
